FAERS Safety Report 11063183 (Version 1)
Quarter: 2015Q2

REPORT INFORMATION
  Report Type: Spontaneous
  Country: US (occurrence: US)
  Receive Date: 20150424
  Receipt Date: 20150424
  Transmission Date: 20150821
  Serious: Yes (Hospitalization, Other)
  Sender: FDA-Public Use
  Company Number: US-RB PHARMACEUTICALS LIMITED-RB-078350-2015

PATIENT
  Age: 25 Year
  Sex: Male

DRUGS (1)
  1. SUBOXONE [Suspect]
     Active Substance: BUPRENORPHINE HYDROCHLORIDE\NALOXONE HYDROCHLORIDE
     Indication: DRUG DEPENDENCE
     Dosage: 2-4 MG, DAILY
     Route: 060
     Dates: start: 20150409, end: 20150414

REACTIONS (4)
  - Pneumothorax [Not Recovered/Not Resolved]
  - Wheezing [Not Recovered/Not Resolved]
  - Skin lesion [Not Recovered/Not Resolved]
  - Stomatitis [Not Recovered/Not Resolved]

NARRATIVE: CASE EVENT DATE: 20150412
